FAERS Safety Report 5758338-1 (Version None)
Quarter: 2008Q2

REPORT INFORMATION
  Report Type: 
  Country: None (occurrence: None)
  Receive Date: 20080604
  Receipt Date: 20080528
  Transmission Date: 20081010
  Serious: Yes (Other)
  Sender: FDA-Public Use
  Company Number: US-JNJFOC-20080403402

PATIENT
  Sex: Female
  Weight: 81.65 kg

DRUGS (2)
  1. LEVAQUIN [Suspect]
     Indication: URINARY TRACT INFECTION
     Route: 048
  2. CARDIZEM CD [Concomitant]
     Indication: HYPERTENSION
     Route: 048

REACTIONS (3)
  - DYSPNOEA [None]
  - SWELLING [None]
  - THROAT TIGHTNESS [None]
